APPROVED DRUG PRODUCT: OXYCODONE AND ACETAMINOPHEN
Active Ingredient: ACETAMINOPHEN; OXYCODONE HYDROCHLORIDE
Strength: 325MG;5MG
Dosage Form/Route: TABLET;ORAL
Application: A201447 | Product #002 | TE Code: AA
Applicant: ACTAVIS ELIZABETH LLC
Approved: Apr 12, 2013 | RLD: No | RS: No | Type: RX